FAERS Safety Report 8814689 (Version 1)
Quarter: 2012Q4

REPORT INFORMATION
  Report Type: Spontaneous
  Country: AU (occurrence: None)
  Receive Date: 20120926
  Receipt Date: 20120926
  Transmission Date: 20130627
  Serious: Yes (Other)
  Sender: FDA-Public Use
  Company Number: 1414841

PATIENT
  Age: 71 Year
  Sex: Female
  Weight: 70.7 kg

DRUGS (3)
  1. GEMCITABINE HYDROCHLORIDE [Suspect]
     Route: 042
     Dates: start: 20120608, end: 20120629
  2. METOCLOPRAMIDE [Concomitant]
  3. DEXAMETHASONE [Concomitant]

REACTIONS (1)
  - Thrombophlebitis superficial [None]
